FAERS Safety Report 4884897-7 (Version None)
Quarter: 2006Q1

REPORT INFORMATION
  Report Type: 
  Country: None (occurrence: None)
  Receive Date: 20060119
  Receipt Date: 20051229
  Transmission Date: 20060701
  Serious: Yes (Hospitalization)
  Sender: FDA-Public Use
  Company Number: US-BRISTOL-MYERS SQUIBB COMPANY-13233432

PATIENT
  Age: 44 Year
  Sex: Male

DRUGS (10)
  1. DIDANOSINE [Suspect]
     Indication: HIV INFECTION
     Route: 048
  2. ABACAVIR [Suspect]
     Indication: HIV INFECTION
     Route: 048
  3. TENOFOVIR [Suspect]
     Indication: HIV INFECTION
     Route: 048
  4. SERTRALINE [Suspect]
     Route: 048
  5. SEROQUEL [Suspect]
     Route: 048
  6. TRAZODONE HCL [Suspect]
     Route: 048
  7. ATENOLOL [Suspect]
     Route: 048
  8. DAPSONE [Suspect]
     Route: 048
  9. GABAPENTIN [Concomitant]
     Route: 048
  10. METHADONE [Concomitant]
     Route: 048

REACTIONS (1)
  - RENAL TUBULAR NECROSIS [None]
